FAERS Safety Report 8624066-8 (Version None)
Quarter: 2012Q3

REPORT INFORMATION
  Report Type: 
  Country: None (occurrence: None)
  Receive Date: 20120827
  Receipt Date: 20120822
  Transmission Date: 20120928
  Serious: No
  Sender: FDA-Public Use
  Company Number: US-PFIZER INC-2012207382

PATIENT

DRUGS (1)
  1. GEODON [Suspect]
     Dosage: UNK
     Dates: start: 20120308, end: 20120314

REACTIONS (2)
  - MEMORY IMPAIRMENT [None]
  - VOMITING [None]
